FAERS Safety Report 13698658 (Version 1)
Quarter: 2017Q2

REPORT INFORMATION
  Report Type: Report from Study
  Country: US (occurrence: CN)
  Receive Date: 20170628
  Receipt Date: 20170628
  Transmission Date: 20170830
  Serious: Yes (Hospitalization)
  Sender: FDA-Public Use
  Company Number: CN-ALLERGAN-1000085987

PATIENT
  Age: 33 Year
  Sex: Female

DRUGS (10)
  1. VORICONAZOLE. [Suspect]
     Active Substance: VORICONAZOLE
     Indication: PNEUMONIA FUNGAL
     Dosage: UNK
     Dates: start: 20141210, end: 20141229
  2. DOXOFYLLINE [Concomitant]
     Active Substance: DOXOFYLLINE
     Indication: CHRONIC OBSTRUCTIVE PULMONARY DISEASE
     Dosage: UNK
  3. CEFTAZIDIME;AVIBACTAM UNK [Suspect]
     Active Substance: AVIBACTAM SODIUM\CEFTAZIDIME
     Indication: PNEUMONIA
  4. MONTELUKAST SODIUM. [Concomitant]
     Active Substance: MONTELUKAST SODIUM
     Indication: CHRONIC OBSTRUCTIVE PULMONARY DISEASE
     Dosage: UNK
  5. AMIKACIN [Suspect]
     Active Substance: AMIKACIN
     Indication: LUNG INFECTION
     Dosage: UNK
     Dates: start: 20141207, end: 20141209
  6. ENTECAVIR. [Concomitant]
     Active Substance: ENTECAVIR
     Indication: HEPATITIS B
     Dosage: UNK
  7. CEFTAZIDIME;AVIBACTAM UNK [Suspect]
     Active Substance: AVIBACTAM SODIUM\CEFTAZIDIME
     Indication: PNEUMONIA
     Dosage: UNK
     Dates: start: 20141207, end: 20141221
  8. VITAMINE C [Concomitant]
     Active Substance: ASCORBIC ACID
     Indication: ADJUVANT THERAPY
     Dosage: UNK
  9. LINEZOLID. [Suspect]
     Active Substance: LINEZOLID
     Indication: LUNG INFECTION
     Dosage: UNK
     Dates: start: 20141207, end: 20141221
  10. POTASSIUM CHLORIDE. [Concomitant]
     Active Substance: POTASSIUM CHLORIDE
     Indication: BLOOD POTASSIUM DECREASED
     Dosage: UNK

REACTIONS (1)
  - Subacute hepatic failure [Recovering/Resolving]

NARRATIVE: CASE EVENT DATE: 20141227
